FAERS Safety Report 18407738 (Version 1)
Quarter: 2020Q4

REPORT INFORMATION
  Report Type: Spontaneous
  Country: JP (occurrence: JP)
  Receive Date: 20201020
  Receipt Date: 20201020
  Transmission Date: 20210114
  Serious: Yes (Death, Other)
  Sender: FDA-Public Use
  Company Number: JP-009507513-2008JPN001953J

PATIENT
  Age: 6 Decade
  Sex: Male

DRUGS (3)
  1. ANCOTIL [Concomitant]
     Active Substance: FLUCYTOSINE
     Indication: DISSEMINATED TRICHOSPORONOSIS
     Dosage: UNK
     Route: 065
     Dates: end: 202006
  2. NOXAFIL [Suspect]
     Active Substance: POSACONAZOLE
     Indication: DISSEMINATED TRICHOSPORONOSIS
     Dosage: 300 MILLIGRAM, QD
     Route: 048
     Dates: start: 202005, end: 202005
  3. AMBISOME [Concomitant]
     Active Substance: AMPHOTERICIN B
     Indication: DISSEMINATED TRICHOSPORONOSIS
     Dosage: UNK
     Route: 065
     Dates: end: 202006

REACTIONS (3)
  - Pneumonia aspiration [Fatal]
  - Off label use [Unknown]
  - Dysphagia [Unknown]

NARRATIVE: CASE EVENT DATE: 202005
